FAERS Safety Report 7623841-6 (Version None)
Quarter: 2011Q3

REPORT INFORMATION
  Report Type: 
  Country: None (occurrence: None)
  Receive Date: 20110720
  Receipt Date: 20110713
  Transmission Date: 20111222
  Serious: Yes (Other)
  Sender: FDA-Public Use
  Company Number: US-PFIZER INC-2011159524

PATIENT
  Sex: Female

DRUGS (2)
  1. VFEND [Suspect]
     Dosage: 300 MG, 2X/DAY
     Route: 042
  2. VFEND [Suspect]
     Dosage: 250 MG, 2X/DAY

REACTIONS (1)
  - HALLUCINATION [None]
